FAERS Safety Report 9508044 (Version 2)
Quarter: 2013Q3

REPORT INFORMATION
  Report Type: Report from Study
  Country: US (occurrence: US)
  Receive Date: 20130909
  Receipt Date: 20130930
  Transmission Date: 20140515
  Serious: Yes (Hospitalization, Other)
  Sender: FDA-Public Use
  Company Number: US-US-EMD SERONO, INC.-7235502

PATIENT
  Sex: Female

DRUGS (1)
  1. REBIF [Suspect]
     Indication: PRODUCT USED FOR UNKNOWN INDICATION
     Route: 058
     Dates: start: 20031231

REACTIONS (4)
  - Sepsis [Recovering/Resolving]
  - Loss of consciousness [Recovering/Resolving]
  - Post procedural infection [Recovering/Resolving]
  - Benign bone neoplasm [Recovering/Resolving]
